FAERS Safety Report 10513422 (Version 1)
Quarter: 2014Q4

REPORT INFORMATION
  Report Type: Spontaneous
  Country: US (occurrence: US)
  Receive Date: 20141013
  Receipt Date: 20141013
  Transmission Date: 20150528
  Serious: Yes (Other)
  Sender: FDA-Public Use
  Company Number: US-AMGEN-USASP2014077225

PATIENT
  Age: 64 Year
  Sex: Female

DRUGS (9)
  1. LEXAPRO [Concomitant]
     Active Substance: ESCITALOPRAM OXALATE
     Dosage: UNK UNK, QD
  2. GLUCOSAMINE [Concomitant]
     Active Substance: GLUCOSAMINE
  3. FLEXERIL [Concomitant]
     Active Substance: CYCLOBENZAPRINE HYDROCHLORIDE
     Dosage: UNK UNK, QD
  4. VITAMIN D                          /00107901/ [Concomitant]
     Active Substance: ERGOCALCIFEROL
  5. FISH OIL [Concomitant]
     Active Substance: FISH OIL
  6. PROLIA [Suspect]
     Active Substance: DENOSUMAB
     Indication: OSTEOPOROSIS POSTMENOPAUSAL
     Dosage: UNK
     Route: 065
     Dates: start: 201209
  7. ALPRAZOLAM. [Concomitant]
     Active Substance: ALPRAZOLAM
     Dosage: UNK UNK, QD
  8. METOPROLOL [Concomitant]
     Active Substance: METOPROLOL
     Dosage: UNK UNK, QD
  9. QUERCETIN [Concomitant]
     Active Substance: QUERCETIN

REACTIONS (2)
  - Spinal deformity [Unknown]
  - Fatigue [Unknown]

NARRATIVE: CASE EVENT DATE: 2013
